FAERS Safety Report 26047908 (Version 1)
Quarter: 2025Q4

REPORT INFORMATION
  Report Type: Spontaneous
  Country: US (occurrence: US)
  Receive Date: 20251114
  Receipt Date: 20251114
  Transmission Date: 20260117
  Serious: Yes (Hospitalization, Disabling, Other)
  Sender: NOVO NORDISK
  Company Number: US-NOVOPROD-1561948

PATIENT
  Age: 60 Year
  Sex: Female

DRUGS (1)
  1. NOVOLOG [Suspect]
     Active Substance: INSULIN ASPART
     Indication: Type 2 diabetes mellitus
     Dosage: 40 IN THE MORNING, 40 IN THE EVENING, OCCASIONAL 10 WITH MEALS
     Route: 058
     Dates: start: 2017

REACTIONS (13)
  - Fall [Unknown]
  - Skin ulcer [Unknown]
  - Rib fracture [Unknown]
  - Shoulder fracture [Unknown]
  - Foot fracture [Unknown]
  - Localised infection [Unknown]
  - Lymphoedema [Unknown]
  - Concussion [Unknown]
  - Amnesia [Unknown]
  - Herpes zoster [Unknown]
  - Infection [Unknown]
  - Lymphadenopathy [Unknown]
  - Contusion [Unknown]

NARRATIVE: CASE EVENT DATE: 20190101
